FAERS Safety Report 7656876-8 (Version None)
Quarter: 2011Q3

REPORT INFORMATION
  Report Type: 
  Country: None (occurrence: None)
  Receive Date: 20110804
  Receipt Date: 20110801
  Transmission Date: 20111222
  Serious: Yes (Other)
  Sender: FDA-Public Use
  Company Number: BR-PFIZER INC-2011174848

PATIENT
  Age: 74 Year
  Sex: Female
  Weight: 63 kg

DRUGS (5)
  1. ACETYLSALICYLIC ACID [Concomitant]
     Indication: PROPHYLAXIS
     Dosage: UNK
     Dates: start: 20061101
  2. ATORVASTATIN CALCIUM [Suspect]
     Indication: BLOOD CHOLESTEROL INCREASED
     Dosage: 5 MG (HALF 10 MG TABLET), 1X/DAY
     Route: 048
     Dates: start: 20110620, end: 20110701
  3. ATORVASTATIN CALCIUM [Suspect]
     Dosage: UNK
     Route: 048
     Dates: start: 20110731
  4. ATENOLOL [Concomitant]
     Indication: HYPERTENSION
     Dosage: 50 MG, UNK
  5. ATENOLOL [Concomitant]
     Indication: PROPHYLAXIS

REACTIONS (3)
  - CYSTITIS [None]
  - IRRITABILITY [None]
  - ABDOMINAL PAIN LOWER [None]
